FAERS Safety Report 19251332 (Version 2)
Quarter: 2021Q2

REPORT INFORMATION
  Report Type: Spontaneous
  Country: US (occurrence: US)
  Receive Date: 20210512
  Receipt Date: 20210524
  Transmission Date: 20210717
  Serious: Yes (Death, Life-Threatening, Other)
  Sender: FDA-Public Use
  Company Number: US-SUNOVION-2021SUN001731

PATIENT
  Age: 75 Year
  Sex: Female

DRUGS (1)
  1. LATUDA [Suspect]
     Active Substance: LURASIDONE HYDROCHLORIDE
     Indication: PRODUCT USED FOR UNKNOWN INDICATION
     Dosage: 120 MG
     Route: 048

REACTIONS (5)
  - Drug ineffective [Fatal]
  - Hip surgery [Recovered/Resolved]
  - Acute respiratory distress syndrome [Fatal]
  - Anxiety [Fatal]
  - Suspected suicide [Unknown]
